FAERS Safety Report 6539349-5 (Version None)
Quarter: 2010Q1

REPORT INFORMATION
  Report Type: 
  Country: None (occurrence: None)
  Receive Date: 20100115
  Receipt Date: 20100104
  Transmission Date: 20100710
  Serious: Yes (Death)
  Sender: FDA-Public Use
  Company Number: US-PFIZER INC-2010000815

PATIENT
  Age: 63 Year
  Sex: Male

DRUGS (12)
  1. ATENOLOL [Suspect]
     Route: 048
  2. PRAZOSIN HCL [Suspect]
     Route: 048
  3. GABAPENTIN [Suspect]
     Route: 048
  4. AMITRIPTYLINE [Suspect]
     Route: 048
  5. OXYCODONE [Suspect]
     Route: 048
  6. PROMETHAZINE HCL [Suspect]
     Route: 048
  7. MIRTAZAPINE [Suspect]
     Route: 048
  8. CLONAZEPAM [Suspect]
     Route: 048
  9. TRAZODONE [Suspect]
     Route: 048
  10. NIACIN [Suspect]
     Route: 048
  11. PRAVACHOL [Suspect]
     Route: 048
  12. VENLAFAXINE [Suspect]
     Route: 048

REACTIONS (3)
  - CARDIAC ARREST [None]
  - COMPLETED SUICIDE [None]
  - RESPIRATORY ARREST [None]
